FAERS Safety Report 21192761 (Version 2)
Quarter: 2022Q4

REPORT INFORMATION
  Report Type: Spontaneous
  Country: US (occurrence: US)
  Receive Date: 20220810
  Receipt Date: 20221021
  Transmission Date: 20230112
  Serious: Yes (Other)
  Sender: FDA-Public Use
  Company Number: US-CELGENE-USA-20190401203

PATIENT
  Age: 36 Year
  Sex: Female

DRUGS (4)
  1. THALOMID [Suspect]
     Active Substance: THALIDOMIDE
     Indication: Product used for unknown indication
     Dosage: 50 MILLIGRAM
     Route: 050
     Dates: start: 201303
  2. THALOMID [Suspect]
     Active Substance: THALIDOMIDE
     Dosage: DOSE: 100-200MG ONCE DAILY
     Route: 050
     Dates: start: 201403
  3. THALOMID [Suspect]
     Active Substance: THALIDOMIDE
     Route: 050
     Dates: start: 201408
  4. THALOMID [Suspect]
     Active Substance: THALIDOMIDE
     Route: 050
     Dates: start: 201503

REACTIONS (2)
  - Exposure via body fluid [Unknown]
  - Pregnancy with contraceptive device [Unknown]
